FAERS Safety Report 11058124 (Version 1)
Quarter: 2015Q2

REPORT INFORMATION
  Report Type: Spontaneous
  Country: US (occurrence: None)
  Receive Date: 20150421
  Receipt Date: 20150421
  Transmission Date: 20150821
  Serious: Yes (Hospitalization, Other)
  Sender: FDA-Public Use
  Company Number: 2015COV00085

PATIENT
  Age: 47 Year
  Sex: Male

DRUGS (8)
  1. LANOXIN [Suspect]
     Active Substance: DIGOXIN
  2. AMBRISENTAN () TABLET [Suspect]
     Active Substance: AMBRISENTAN
     Indication: DRUG ABUSE
     Dates: start: 20120219
  3. AMBRISENTAN () TABLET [Suspect]
     Active Substance: AMBRISENTAN
     Indication: PULMONARY ARTERIAL HYPERTENSION
     Dates: start: 20120219
  4. TYVASO (TREPROSTINIL) [Concomitant]
  5. METOLAZONE. [Concomitant]
     Active Substance: METOLAZONE
  6. AMBRISENTAN () TABLET [Suspect]
     Active Substance: AMBRISENTAN
     Indication: ALCOHOL ABUSE
     Dates: start: 20120219
  7. SPIRONOLACTONE. [Concomitant]
     Active Substance: SPIRONOLACTONE
  8. TORSEMIDE. [Concomitant]
     Active Substance: TORSEMIDE

REACTIONS (5)
  - Alcohol poisoning [None]
  - Toxicity to various agents [None]
  - Dyspnoea exertional [None]
  - Hypotension [None]
  - Fluid retention [None]

NARRATIVE: CASE EVENT DATE: 201405
